FAERS Safety Report 8246817-7 (Version None)
Quarter: 2012Q1

REPORT INFORMATION
  Report Type: 
  Country: None (occurrence: None)
  Receive Date: 20120330
  Receipt Date: 20120323
  Transmission Date: 20120608
  Serious: Yes (Life-Threatening)
  Sender: FDA-Public Use
  Company Number: IT-UCBSA-053577

PATIENT
  Age: 76 Year
  Sex: Female

DRUGS (5)
  1. DEPONIT [Suspect]
     Indication: SYSTEMIC SCLEROSIS
     Dosage: 15 TRANSDERMAL PATCHES
     Route: 062
     Dates: start: 20120226, end: 20120226
  2. OLMESARTAN MEDOXOMIL [Concomitant]
     Dosage: 20 MG, 28 FILM COATED TABLETS
     Route: 048
  3. VISTAGAN [Concomitant]
     Dosage: 0.5% EYE DROPS SOLUTION,5 ML BOTTLE
     Route: 047
  4. XALATAN [Concomitant]
     Dosage: 0.005% EYE DROPS SOLUTION,2.5 ML BOTTLE
  5. DIBASE [Concomitant]
     Dosage: 10000 UI/ML.,10 ML BOTTLE WITH DROPPER, TOTAL DAILY DOSE:3 DROPS
     Route: 048

REACTIONS (5)
  - CONFUSIONAL STATE [None]
  - BALANCE DISORDER [None]
  - CHEST PAIN [None]
  - DYSPNOEA [None]
  - MIGRAINE [None]
